FAERS Safety Report 25530830 (Version 2)
Quarter: 2025Q3

REPORT INFORMATION
  Report Type: Spontaneous
  Country: TW (occurrence: TW)
  Receive Date: 20250708
  Receipt Date: 20250709
  Transmission Date: 20251021
  Serious: Yes (Hospitalization)
  Sender: MERCK SHARP & DOHME LLC
  Company Number: TW-009507513-2303335

PATIENT
  Age: 70 Year
  Sex: Male

DRUGS (4)
  1. PEMBROLIZUMAB [Suspect]
     Active Substance: PEMBROLIZUMAB
     Indication: Transitional cell carcinoma
     Route: 041
     Dates: start: 20250428, end: 20250428
  2. PEMBROLIZUMAB [Suspect]
     Active Substance: PEMBROLIZUMAB
     Indication: Transitional cell carcinoma
     Route: 041
     Dates: start: 20250407, end: 20250407
  3. ENFORTUMAB VEDOTIN [Suspect]
     Active Substance: ENFORTUMAB VEDOTIN
     Indication: Transitional cell carcinoma
     Route: 041
     Dates: start: 20250407, end: 20250407
  4. ENFORTUMAB VEDOTIN [Suspect]
     Active Substance: ENFORTUMAB VEDOTIN
     Indication: Transitional cell carcinoma
     Route: 041
     Dates: start: 20250428, end: 20250428

REACTIONS (1)
  - Pemphigoid [Recovering/Resolving]

NARRATIVE: CASE EVENT DATE: 20250415
